FAERS Safety Report 11928070 (Version 1)
Quarter: 2016Q1

REPORT INFORMATION
  Report Type: Spontaneous
  Country: US (occurrence: US)
  Receive Date: 20160119
  Receipt Date: 20160119
  Transmission Date: 20160526
  Serious: Yes (Hospitalization, Other)
  Sender: FDA-Public Use
  Company Number: US-SHIRE-US201600389

PATIENT
  Age: 88 Year
  Sex: Female

DRUGS (2)
  1. HYDREA [Concomitant]
     Active Substance: HYDROXYUREA
     Indication: PLATELET COUNT
     Dosage: UNK, UNKNOWN
     Route: 065
     Dates: start: 2015
  2. AGRYLIN [Suspect]
     Active Substance: ANAGRELIDE HYDROCHLORIDE
     Indication: PLATELET COUNT ABNORMAL
     Dosage: UNK, UNKNOWN
     Route: 048
     Dates: start: 2005, end: 2015

REACTIONS (2)
  - Therapy cessation [Unknown]
  - Hospitalisation [Unknown]
